FAERS Safety Report 9971307 (Version 2)
Quarter: 2014Q1

REPORT INFORMATION
  Report Type: Report from Study
  Country: US (occurrence: US)
  Receive Date: 20140306
  Receipt Date: 20140306
  Transmission Date: 20141002
  Serious: No
  Sender: FDA-Public Use
  Company Number: US-ABBVIE-13P-163-1141374-00

PATIENT
  Age: 49 Year
  Sex: Female

DRUGS (2)
  1. HUMIRA [Suspect]
     Indication: PSORIATIC ARTHROPATHY
     Dosage: FIRST DOSE
     Dates: start: 20130827, end: 20130827
  2. HUMIRA [Suspect]
     Dates: start: 20130918

REACTIONS (3)
  - Medication error [Unknown]
  - Drug dispensing error [Unknown]
  - Incorrect dose administered [Unknown]
